FAERS Safety Report 11293563 (Version 5)
Quarter: 2015Q3

REPORT INFORMATION
  Report Type: Spontaneous
  Country: PT (occurrence: PT)
  Receive Date: 20150722
  Receipt Date: 20150831
  Transmission Date: 20151125
  Serious: Yes (Hospitalization, Other)
  Sender: FDA-Public Use
  Company Number: PT-PFIZER INC-2015240992

PATIENT
  Age: 63 Year
  Sex: Female

DRUGS (5)
  1. XALATAN [Suspect]
     Active Substance: LATANOPROST
     Indication: GLAUCOMA
     Dosage: 1 GTT (IN EACH EYE), 1X/DAY AT NIGHT
     Route: 047
     Dates: start: 2007, end: 201309
  2. PANTOPRAZOLE [Concomitant]
     Active Substance: PANTOPRAZOLE SODIUM
     Indication: GASTROOESOPHAGEAL REFLUX DISEASE
     Dosage: UNK
     Dates: start: 2009
  3. XALATAN [Suspect]
     Active Substance: LATANOPROST
     Dosage: 1 GTT (IN EACH EYE), 1X/DAY AT NIGHT
     Route: 047
     Dates: start: 201310, end: 201410
  4. XALATAN [Suspect]
     Active Substance: LATANOPROST
     Dosage: 1 GTT (IN EACH EYE), 1X/DAY AT NIGHT
     Route: 047
     Dates: start: 201506
  5. VASTAREL [Concomitant]
     Active Substance: TRIMETAZIDINE DIHYDROCHLORIDE
     Indication: MITRAL VALVE PROLAPSE
     Dosage: UNK
     Dates: start: 2009

REACTIONS (3)
  - Cataract [Not Recovered/Not Resolved]
  - Visual acuity reduced [Not Recovered/Not Resolved]
  - Cataract [Recovered/Resolved]

NARRATIVE: CASE EVENT DATE: 201309
